FAERS Safety Report 6111578-4 (Version None)
Quarter: 2009Q1

REPORT INFORMATION
  Report Type: 
  Country: None (occurrence: None)
  Receive Date: 20090310
  Receipt Date: 20090310
  Transmission Date: 20090719
  Serious: Yes (Other)
  Sender: FDA-Public Use
  Company Number: None

PATIENT
  Age: 36 Year
  Sex: Female
  Weight: 43.0917 kg

DRUGS (1)
  1. SILVADENE [Suspect]
     Indication: BURNS THIRD DEGREE
     Dosage: APPLIED BY NURSE EACH DRESSING DAILY TOP
     Route: 061
     Dates: start: 20090303, end: 20090309

REACTIONS (5)
  - CHROMATURIA [None]
  - EYE DISORDER [None]
  - NAUSEA [None]
  - URINE ABNORMALITY [None]
  - VOMITING [None]
